FAERS Safety Report 5383597-7 (Version None)
Quarter: 2007Q3

REPORT INFORMATION
  Report Type: 
  Country: None (occurrence: None)
  Receive Date: 20070706
  Receipt Date: 20070619
  Transmission Date: 20080115
  Serious: Yes (Other)
  Sender: FDA-Public Use
  Company Number: 2007BI008635

PATIENT
  Age: 57 Year
  Sex: Female
  Weight: 60 kg

DRUGS (5)
  1. AVONEX [Suspect]
     Indication: MULTIPLE SCLEROSIS
     Dosage: ; IM
     Route: 030
     Dates: start: 20070403
  2. LEVOTHYROXINE SODIUM [Concomitant]
  3. ATENOLOL [Concomitant]
  4. AMOXICILLIN [Concomitant]
  5. NOVALGINA [Concomitant]

REACTIONS (6)
  - CONVULSION [None]
  - HEADACHE [None]
  - NECK PAIN [None]
  - PAIN [None]
  - PYREXIA [None]
  - SYNCOPE [None]
